FAERS Safety Report 4297502-8 (Version None)
Quarter: 2004Q1

REPORT INFORMATION
  Report Type: 
  Country: None (occurrence: None)
  Receive Date: 20040213
  Receipt Date: 20040129
  Transmission Date: 20041129
  Serious: Yes (Hospitalization, Congenital Anomaly, Other)
  Sender: FDA-Public Use
  Company Number: 2003-FF-00357FF

PATIENT
  Sex: Male

DRUGS (18)
  1. VIRAMUNE [Suspect]
     Indication: VERTICAL INFECTION TRANSMISSION
     Dosage: 5.4 ML (ML)
     Route: 048
     Dates: start: 19981211, end: 19981211
  2. VIRAMUNE [Suspect]
     Indication: HIV INFECTION
     Dosage: 400 MG (200 MG)
     Route: 064
     Dates: end: 19980415
  3. VIRAMUNE [Suspect]
     Indication: HIV INFECTION
     Dosage: 400 MG (200 MG)
     Route: 064
     Dates: start: 19980710, end: 19981208
  4. VIDEX [Suspect]
     Indication: HIV INFECTION
     Dosage: 51 MG (MG)
     Route: 048
     Dates: end: 19990115
  5. VIDEX [Suspect]
     Indication: VERTICAL INFECTION TRANSMISSION
     Dosage: 51 MG (MG)
     Route: 048
     Dates: end: 19990115
  6. ZERIT [Suspect]
     Indication: HIV INFECTION
     Dosage: 5 ML (ML)
     Route: 064
     Dates: end: 19990115
  7. ZERIT [Suspect]
     Indication: VERTICAL INFECTION TRANSMISSION
     Dosage: 5 ML (ML)
     Route: 064
     Dates: end: 19990115
  8. RETROVIR [Suspect]
     Indication: VERTICAL INFECTION TRANSMISSION
     Dosage: ML (ML)
     Route: 064
     Dates: start: 19981208, end: 19981208
  9. VIDEX [Suspect]
     Indication: HIV INFECTION
     Dosage: 300 MG (150 MG, 1 IN 12 HR)
     Route: 048
     Dates: end: 19980415
  10. VIDEX [Suspect]
     Indication: HIV INFECTION
     Dosage: 300 MG (150 MG, 1 IN 12 HR)
     Route: 048
     Dates: start: 19980710, end: 19981208
  11. ZERIT [Suspect]
     Indication: HIV INFECTION
     Dosage: 60 MG (30MG, 1 IN 12 HR)
     Route: 048
     Dates: end: 19980415
  12. ZERIT [Suspect]
     Indication: HIV INFECTION
     Dosage: 60 MG (30MG, 1 IN 12 HR)
     Route: 048
     Dates: start: 19980710, end: 19981208
  13. UVESTEROL (UVESTEROL) [Concomitant]
  14. AMOXICILLIN TRIHYDRATE [Concomitant]
  15. BACTRIM [Concomitant]
  16. PEVARYL (ECONAZOLE NITRATE) [Concomitant]
  17. MICONAZOLE NITRATE [Concomitant]
  18. TARDYFERON B9 [Concomitant]

REACTIONS (16)
  - ALANINE AMINOTRANSFERASE INCREASED [None]
  - ASPARTATE AMINOTRANSFERASE INCREASED [None]
  - CLEFT LIP [None]
  - COMPLICATIONS OF MATERNAL EXPOSURE TO THERAPEUTIC DRUGS [None]
  - CRYPTORCHISM [None]
  - FUNGAL INFECTION [None]
  - HAEMOGLOBIN DECREASED [None]
  - HYPERLACTACIDAEMIA [None]
  - LIPASE INCREASED [None]
  - LUNG DISORDER [None]
  - MATERNAL DRUGS AFFECTING FOETUS [None]
  - NEONATAL DISORDER [None]
  - NEUTROPENIA [None]
  - NEUTROPENIA NEONATAL [None]
  - NEUTROPHIL COUNT DECREASED [None]
  - WHITE BLOOD CELL COUNT INCREASED [None]
